FAERS Safety Report 11144316 (Version 1)
Quarter: 2015Q2

REPORT INFORMATION
  Report Type: Spontaneous
  Country: US (occurrence: US)
  Receive Date: 20150526
  Receipt Date: 20150526
  Transmission Date: 20150821
  Serious: No
  Sender: FDA-Public Use
  Company Number: US-PFIZER INC-2015163582

PATIENT
  Age: 45 Year
  Sex: Male
  Weight: 57 kg

DRUGS (1)
  1. VIAGRA [Suspect]
     Active Substance: SILDENAFIL CITRATE
     Indication: ERECTILE DYSFUNCTION
     Dosage: 50 MG, ONCE
     Route: 048
     Dates: start: 201504

REACTIONS (1)
  - Premature ejaculation [Unknown]

NARRATIVE: CASE EVENT DATE: 201504
